FAERS Safety Report 8375363-5 (Version None)
Quarter: 2012Q2

REPORT INFORMATION
  Report Type: 
  Country: None (occurrence: None)
  Receive Date: 20120522
  Receipt Date: 20120511
  Transmission Date: 20120825
  Serious: No
  Sender: FDA-Public Use
  Company Number: US-BIOGENIDEC-2012BI017010

PATIENT
  Age: 38 Year
  Sex: Female

DRUGS (3)
  1. STEROIDS (NOS) [Concomitant]
  2. TYSABRI [Suspect]
     Indication: MULTIPLE SCLEROSIS
     Route: 042
     Dates: start: 20120416
  3. AVONEX [Concomitant]
     Indication: MULTIPLE SCLEROSIS
     Route: 030
     Dates: start: 19971101

REACTIONS (4)
  - CONSTIPATION [None]
  - FUNGAL INFECTION [None]
  - PRURITUS [None]
  - RASH PRURITIC [None]
